FAERS Safety Report 9671379 (Version 1)
Quarter: 2013Q4

REPORT INFORMATION
  Report Type: Spontaneous
  Country: US (occurrence: US)
  Receive Date: 20131106
  Receipt Date: 20131106
  Transmission Date: 20140711
  Serious: No
  Sender: FDA-Public Use
  Company Number: US-ABBVIE-13P-163-1053883-00

PATIENT
  Age: 52 Year
  Sex: Male
  Weight: 137.11 kg

DRUGS (14)
  1. FENOFIBRATE [Suspect]
     Indication: PRODUCT USED FOR UNKNOWN INDICATION
  2. IBUPROFEN TABLETS [Interacting]
     Indication: PRODUCT USED FOR UNKNOWN INDICATION
     Route: 048
  3. PODOFILOX TOPOCAL SOLUTION 0.5% [Interacting]
     Indication: PRURITUS GENITAL
     Dosage: 2 DOSES/APPLICATIONS
     Route: 061
     Dates: start: 20121116, end: 20121116
  4. METFORMIN [Interacting]
     Indication: PRODUCT USED FOR UNKNOWN INDICATION
     Route: 048
  5. FISH OIL [Interacting]
     Indication: PRODUCT USED FOR UNKNOWN INDICATION
     Route: 048
  6. ASPIRIN BAYER [Interacting]
     Indication: PRODUCT USED FOR UNKNOWN INDICATION
  7. RANITIDINE [Interacting]
     Indication: PRODUCT USED FOR UNKNOWN INDICATION
     Route: 048
  8. CILOSTAZOL [Interacting]
     Indication: PRODUCT USED FOR UNKNOWN INDICATION
     Route: 048
  9. ATORVASTATIN [Interacting]
     Indication: PRODUCT USED FOR UNKNOWN INDICATION
     Route: 048
  10. CARVEDILOL [Interacting]
     Indication: PRODUCT USED FOR UNKNOWN INDICATION
  11. LISINOPRIL [Interacting]
     Indication: PRODUCT USED FOR UNKNOWN INDICATION
  12. HYDROCHLOROTHIAZIDE [Interacting]
     Indication: PRODUCT USED FOR UNKNOWN INDICATION
     Route: 048
  13. LANTUS [Interacting]
     Indication: PRODUCT USED FOR UNKNOWN INDICATION
  14. HUMALOG [Interacting]
     Indication: PRODUCT USED FOR UNKNOWN INDICATION
     Route: 050

REACTIONS (5)
  - Application site pain [Not Recovered/Not Resolved]
  - Tremor [Unknown]
  - Drug interaction [Unknown]
  - Hypersensitivity [Unknown]
  - Pruritus genital [Unknown]
